FAERS Safety Report 21884411 (Version 4)
Quarter: 2024Q3

REPORT INFORMATION
  Report Type: Report from Study
  Country: US (occurrence: US)
  Receive Date: 20230119
  Receipt Date: 20240807
  Transmission Date: 20241016
  Serious: No
  Sender: ROCHE
  Company Number: US-ROCHE-3267602

PATIENT
  Age: 56 Year
  Sex: Male

DRUGS (1)
  1. OCREVUS [Suspect]
     Active Substance: OCRELIZUMAB
     Indication: Primary progressive multiple sclerosis
     Dosage: INITIAL DOSE DAY 1 AND DAY 15?MORE DOSAGE INFORMATION IS 300 MG SINGLE-USE VIAL.
     Route: 065
     Dates: start: 20220218

REACTIONS (1)
  - COVID-19 [Unknown]
